FAERS Safety Report 17739462 (Version 1)
Quarter: 2020Q2

REPORT INFORMATION
  Report Type: Spontaneous
  Country: US (occurrence: US)
  Receive Date: 20200501
  Receipt Date: 20200501
  Transmission Date: 20200714
  Serious: Yes (Other)
  Sender: FDA-Public Use
  Company Number: None

PATIENT
  Age: 58 Year
  Sex: Male
  Weight: 115 kg

DRUGS (1)
  1. ABEMACICLIB 150MG [Suspect]
     Active Substance: ABEMACICLIB
     Dates: start: 20191212

REACTIONS (1)
  - Amylase increased [None]

NARRATIVE: CASE EVENT DATE: 20200309
